FAERS Safety Report 19753681 (Version 1)
Quarter: 2021Q3

REPORT INFORMATION
  Report Type: Spontaneous
  Country: CN (occurrence: CN)
  Receive Date: 20210826
  Receipt Date: 20210826
  Transmission Date: 20211014
  Serious: Yes (Hospitalization, Other)
  Sender: FDA-Public Use
  Company Number: CN-BAXTER-2021BAX026464

PATIENT
  Age: 16 Year
  Sex: Male
  Weight: 60 kg

DRUGS (12)
  1. HOLOXAN [Suspect]
     Active Substance: IFOSFAMIDE
     Indication: BONE CANCER
     Dosage: 1?3 CYCLES OF IAP CHEMOTHERAPY, IFOSFAMIDE + 0.9% SODIUM CHLORIDE
     Route: 041
  2. LIBAODUO [Suspect]
     Active Substance: DOXORUBICIN HYDROCHLORIDE
     Indication: BONE CANCER
     Dosage: 1?3 CYCLES OF IAP CHEMOTHERAPY, ROUTE: INTRA?PUMP INJECTION, DOXORUBICIN LIPOSOME + 5% GLUCOSE
     Route: 050
  3. HOLOXAN [Suspect]
     Active Substance: IFOSFAMIDE
     Dosage: 4TH CYCLE OF IAP CHEMOTHERAPY, IFOSFAMIDE 4 G + 0.9% SODIUM CHLORIDE 500 ML, D1?3
     Route: 041
     Dates: start: 20210720, end: 20210722
  4. NUOXIN [Suspect]
     Active Substance: CISPLATIN
     Dosage: 4TH CYCLE OF IAP CHEMOTHERAPY, CISPLATIN 160 MG + 0.9% SODIUM CHLORIDE 500 ML
     Route: 041
     Dates: start: 20210720, end: 20210720
  5. 0.9% SODIUM CHLORIDE INJECTION [Suspect]
     Active Substance: SODIUM CHLORIDE
     Dosage: 4TH CYCLE OF IAP CHEMOTHERAPY, 0.9% SODIUM CHLORIDE 500 ML + CISPLATIN 160 MG
     Route: 041
     Dates: start: 20210720, end: 20210720
  6. NUOXIN [Suspect]
     Active Substance: CISPLATIN
     Indication: BONE CANCER
     Dosage: 1?3 CYCLES OF IAP CHEMOTHERAPY, CISPLATIN + 0.9% SODIUM CHLORIDE
     Route: 041
  7. 0.9% SODIUM CHLORIDE INJECTION [Suspect]
     Active Substance: SODIUM CHLORIDE
     Dosage: 1?3 CYCLES OF IAP CHEMOTHERAPY, 0.9% SODIUM CHLORIDE + CISPLATIN
     Route: 041
  8. 5% GLUCOSE  INJECTION [Suspect]
     Active Substance: DEXTROSE
     Indication: MEDICATION DILUTION
     Dosage: 1?3 CYCLES OF IAP CHEMOTHERAPY, ROUTE: INTRA?PUMP INJECTION, 5% GLUCOSE + DOXORUBICIN LIPOSOME
     Route: 050
  9. 5% GLUCOSE  INJECTION [Suspect]
     Active Substance: DEXTROSE
     Dosage: 4TH CYCLE OF IAP CHEMOTHERAPY, ROUTE: INTRA?PUMP INJECTION, 5% GLUCOSE 100 ML + DOXORUBICIN LIPOSOME
     Route: 050
     Dates: start: 20210720, end: 20210720
  10. 0.9% SODIUM CHLORIDE INJECTION [Suspect]
     Active Substance: SODIUM CHLORIDE
     Indication: MEDICATION DILUTION
     Dosage: 1?3 CYCLES OF IAP CHEMOTHERAPY, 0.9% SODIUM CHLORIDE +  IFOSFAMIDE
     Route: 041
  11. 0.9% SODIUM CHLORIDE INJECTION [Suspect]
     Active Substance: SODIUM CHLORIDE
     Dosage: 4TH CYCLE OF IAP CHEMOTHERAPY, 0.9% SODIUM CHLORIDE 500 ML +  IFOSFAMIDE 4 G, D1?3
     Route: 041
     Dates: start: 20210720, end: 20210722
  12. LIBAODUO [Suspect]
     Active Substance: DOXORUBICIN HYDROCHLORIDE
     Dosage: 4TH CYCLE OF IAP CHEMOTHERAPY, ROUTE: INTRA?PUMP INJECTION, 16 HR, DOXORUBICIN LIPOSOME 70 MG + 5% G
     Route: 050
     Dates: start: 20210720, end: 20210720

REACTIONS (3)
  - Myelosuppression [Recovering/Resolving]
  - Febrile neutropenia [Recovering/Resolving]
  - Agranulocytosis [Unknown]

NARRATIVE: CASE EVENT DATE: 20210730
